FAERS Safety Report 8175147-7 (Version None)
Quarter: 2012Q1

REPORT INFORMATION
  Report Type: 
  Country: None (occurrence: None)
  Receive Date: 20120229
  Receipt Date: 20120224
  Transmission Date: 20120608
  Serious: Yes (Death, Other)
  Sender: FDA-Public Use
  Company Number: PHHY2012TW015979

PATIENT

DRUGS (3)
  1. DEPAKENE [Suspect]
     Indication: MENTAL DISORDER
     Dosage: DOSE:200MG/PILL, 500MG/PILL, (RANGE FROM 200MG TO 2400MG)
     Dates: start: 20031119, end: 20120205
  2. CLOZARIL [Suspect]
     Indication: MENTAL DISORDER
     Dosage: 100MG/PILL, RANGE FROM 25MG TO 1200MG
     Dates: start: 20001228, end: 20120205
  3. HALOPERIDOL [Concomitant]
     Indication: MENTAL DISORDER
     Dosage: 5MG (DOSE/FREGUENCY: ONE PILL, BID; 3 PILLS, HS)
     Route: 048
     Dates: start: 20000601, end: 20120205

REACTIONS (12)
  - LIVER FUNCTION TEST ABNORMAL [None]
  - ILEUS [None]
  - BLOOD PRESSURE DECREASED [None]
  - GASTROINTESTINAL MOTILITY DISORDER [None]
  - SEPSIS [None]
  - HEART RATE INCREASED [None]
  - ABDOMINAL PAIN [None]
  - DYSPNOEA [None]
  - TENDERNESS [None]
  - WHITE BLOOD CELL COUNT INCREASED [None]
  - URINARY TRACT INFECTION [None]
  - BLOOD GLUCOSE INCREASED [None]
